FAERS Safety Report 4298963-0 (Version None)
Quarter: 2004Q1

REPORT INFORMATION
  Report Type: 
  Country: None (occurrence: None)
  Receive Date: 20040219
  Receipt Date: 20031118
  Transmission Date: 20041129
  Serious: Yes (Hospitalization)
  Sender: FDA-Public Use
  Company Number: PHEH2003US10718

PATIENT
  Age: 75 Year
  Sex: Male

DRUGS (11)
  1. DIOVAN HCT [Suspect]
     Indication: HYPERTENSION
     Dosage: ONE TABLET DAILY
     Route: 048
     Dates: end: 20031030
  2. DIOVAN [Suspect]
     Indication: HYPERTENSION
     Route: 048
     Dates: start: 20000101, end: 20031031
  3. TOLTERODINE [Concomitant]
     Indication: URINARY INCONTINENCE
     Route: 048
     Dates: start: 19960101
  4. SELEGILINE HCL [Concomitant]
     Indication: PARKINSON'S DISEASE
     Route: 048
     Dates: start: 20000101
  5. CARBIDOPA AND LEVODOPA [Concomitant]
     Indication: PARKINSON'S DISEASE
     Dosage: 25/100 TID
     Route: 048
     Dates: start: 20000101
  6. GUAIFENESIN [Concomitant]
     Indication: UPPER RESPIRATORY TRACT INFECTION
     Route: 048
     Dates: start: 20021018, end: 20021026
  7. AMOXICILLIN [Concomitant]
     Indication: UPPER RESPIRATORY TRACT INFECTION
     Route: 048
     Dates: start: 20021018, end: 20021031
  8. FLUTICASONE PROPIONATE [Concomitant]
     Indication: SEASONAL ALLERGY
     Dosage: 4 PUFFS (2 PUFFS 2 IN ONE DAY)
     Route: 048
     Dates: start: 20031113
  9. DESLORATADINE [Concomitant]
     Indication: SEASONAL ALLERGY
     Route: 048
     Dates: start: 20031113
  10. TRIAMTHIAZID [Concomitant]
     Indication: OEDEMA PERIPHERAL
     Dosage: ONE TABLET DAILY
     Route: 048
     Dates: start: 20030505
  11. RUTIGUTINE [Concomitant]
     Indication: PARKINSON'S DISEASE
     Route: 062
     Dates: start: 20030521

REACTIONS (4)
  - ACCIDENTAL OVERDOSE [None]
  - BACK PAIN [None]
  - CHROMATOPSIA [None]
  - INTERVERTEBRAL DISC DISORDER [None]
